FAERS Safety Report 8456606-6 (Version None)
Quarter: 2012Q2

REPORT INFORMATION
  Report Type: 
  Country: None (occurrence: None)
  Receive Date: 20120621
  Receipt Date: 20120618
  Transmission Date: 20120825
  Serious: Yes (Death, Other)
  Sender: FDA-Public Use
  Company Number: US-CELGENEUS-163-20785-12020221

PATIENT
  Sex: Male

DRUGS (5)
  1. SUCRALFATE [Concomitant]
     Dosage: 1 GRAM
     Route: 048
  2. AMICAR [Concomitant]
     Dosage: 500 MILLIGRAM
     Route: 048
  3. FERROUS SULFATE TAB [Concomitant]
     Dosage: 325 MILLIGRAM
     Route: 048
  4. SIMVASTATIN [Concomitant]
     Dosage: 20 MILLIGRAM
     Route: 048
  5. THALOMID [Suspect]
     Indication: ARTERIOVENOUS MALFORMATION
     Dosage: 50 MILLIGRAM
     Route: 048
     Dates: start: 20100801

REACTIONS (2)
  - SMALL CELL LUNG CANCER METASTATIC [None]
  - PLATELET COUNT DECREASED [None]
